FAERS Safety Report 19090494 (Version 1)
Quarter: 2021Q2

REPORT INFORMATION
  Report Type: Spontaneous
  Country: KR (occurrence: KR)
  Receive Date: 20210405
  Receipt Date: 20210405
  Transmission Date: 20210717
  Serious: Yes (Other)
  Sender: FDA-Public Use
  Company Number: KR-LUPIN PHARMACEUTICALS INC.-2021-04175

PATIENT
  Age: 9 Year
  Sex: Male

DRUGS (4)
  1. VINCRISTINE [Suspect]
     Active Substance: VINCRISTINE
     Dosage: 2 MILLIGRAM, MAINTENANCE PHASE
     Route: 042
     Dates: start: 20171204, end: 20171208
  2. VINCRISTINE [Suspect]
     Active Substance: VINCRISTINE
     Dosage: 2 MILLIGRAM, INDUCTION PHASE
     Route: 042
     Dates: start: 20170824, end: 20170918
  3. METHYLPREDNISOLONE. [Suspect]
     Active Substance: METHYLPREDNISOLONE
     Indication: OPTIC NEUROPATHY
     Dosage: 500 MILLIGRAM, QD
     Route: 042
  4. VINCRISTINE [Suspect]
     Active Substance: VINCRISTINE
     Indication: BURKITT^S LYMPHOMA STAGE IV
     Dosage: 1 MILLIGRAM, REDUCTION PHASE
     Route: 042
     Dates: start: 20170817, end: 20170824

REACTIONS (2)
  - Optic atrophy [Not Recovered/Not Resolved]
  - Drug ineffective [Unknown]
